FAERS Safety Report 19793570 (Version 1)
Quarter: 2021Q3

REPORT INFORMATION
  Report Type: Spontaneous
  Country: IR (occurrence: IR)
  Receive Date: 20210906
  Receipt Date: 20210906
  Transmission Date: 20211014
  Serious: No
  Sender: FDA-Public Use
  Company Number: IR-LUPIN PHARMACEUTICALS INC.-2021-16608

PATIENT
  Age: 15 Year
  Sex: Male

DRUGS (15)
  1. MEROPENEM. [Concomitant]
     Active Substance: MEROPENEM
     Indication: EVIDENCE BASED TREATMENT
     Dosage: UNK
     Route: 065
  2. METHYLPREDNISOLONE. [Suspect]
     Active Substance: METHYLPREDNISOLONE
     Indication: INFECTION REACTIVATION
  3. INTERFERON BETA NOS [Suspect]
     Active Substance: INTERFERON BETA
     Indication: COVID-19
     Dosage: UNK, QOD, 1.2 MILLION UNITS EVERY OTHER DAY
     Route: 058
  4. ARSENIC TRIOXIDE. [Concomitant]
     Active Substance: ARSENIC TRIOXIDE
     Indication: ACUTE MYELOID LEUKAEMIA
     Dosage: 0.15 MILLIGRAM/KILOGRAM, QD
     Route: 065
  5. ALL?TRANS RETINOIC ACID [Concomitant]
     Active Substance: TRETINOIN
     Indication: ACUTE MYELOID LEUKAEMIA
     Dosage: 45 MILLIGRAM/SQ. METER, QD
     Route: 065
  6. REMDESIVIR. [Concomitant]
     Active Substance: REMDESIVIR
     Indication: INFECTION REACTIVATION
     Dosage: 100 MILLIGRAM, 4 DAYS AFTER THAT
     Route: 065
  7. DEXAMETHASONE. [Concomitant]
     Active Substance: DEXAMETHASONE
     Dosage: UNK, DOSE REDUCED
     Route: 065
  8. VANCOMYCIN [Concomitant]
     Active Substance: VANCOMYCIN
     Indication: EVIDENCE BASED TREATMENT
     Dosage: UNK
     Route: 065
  9. METHYLPREDNISOLONE. [Suspect]
     Active Substance: METHYLPREDNISOLONE
     Indication: COVID-19
     Dosage: 500 MILLIGRAM, 3 DAYS OF METHYLPREDNISOLONE 500 MG
     Route: 065
  10. IDARUBICIN [Concomitant]
     Active Substance: IDARUBICIN
     Indication: ACUTE MYELOID LEUKAEMIA
     Dosage: RECEIVED SINGLE DOSE TWICE.
     Route: 065
  11. AMPHOTERICIN [Concomitant]
     Active Substance: AMPHOTERICIN B
     Indication: ANTIFUNGAL TREATMENT
     Dosage: 3 MILLIGRAM/KILOGRAM
     Route: 065
  12. INTERFERON BETA NOS [Suspect]
     Active Substance: INTERFERON BETA
     Indication: INFECTION REACTIVATION
  13. REMDESIVIR. [Concomitant]
     Active Substance: REMDESIVIR
     Indication: COVID-19
     Dosage: 200 MILLIGRAM, DAY 1
     Route: 065
  14. DEXAMETHASONE. [Concomitant]
     Active Substance: DEXAMETHASONE
     Indication: DIFFERENTIATION SYNDROME
     Dosage: 8 MILLIGRAM, BID
     Route: 065
  15. LEVOFLOXACIN. [Concomitant]
     Active Substance: LEVOFLOXACIN
     Indication: EVIDENCE BASED TREATMENT
     Dosage: UNK
     Route: 065

REACTIONS (1)
  - Off label use [Unknown]
